FAERS Safety Report 9185267 (Version 1)
Quarter: 2012Q4

REPORT INFORMATION
  Report Type: 
  Country: US (occurrence: US)
  Receive Date: 20121031
  Receipt Date: 20121031
  Transmission Date: 20130627
  Serious: Yes (Other)
  Sender: FDA-Public Use
  Company Number: US-BAYER-2012-113187

PATIENT
  Age: 20 Year
  Sex: Female

DRUGS (5)
  1. BEYAZ [Suspect]
  2. LOESTRIN FE [Concomitant]
  3. DILANTIN [Concomitant]
  4. FIORICET [Concomitant]
  5. KEPPRA [Concomitant]

REACTIONS (1)
  - Intracranial venous sinus thrombosis [None]
